FAERS Safety Report 6859959-5 (Version None)
Quarter: 2010Q3

REPORT INFORMATION
  Report Type: 
  Country: None (occurrence: None)
  Receive Date: 20100720
  Receipt Date: 20100715
  Transmission Date: 20110219
  Serious: Yes (Death, Other)
  Sender: FDA-Public Use
  Company Number: PHHY2010US34071

PATIENT
  Sex: Male
  Weight: 75.6 kg

DRUGS (7)
  1. EXJADE [Suspect]
     Indication: MYELODYSPLASTIC SYNDROME
     Dosage: 1500 MG DAILY
     Route: 048
     Dates: start: 20090810
  2. LYRICA [Concomitant]
     Dosage: 150 MG, BID
  3. MAGNESIUM CHLORIDE [Concomitant]
     Dosage: 1 DF, QD
     Route: 048
     Dates: start: 20100209
  4. MULTI-VITAMINS [Concomitant]
     Dosage: UNK
     Route: 048
  5. VITAMIN D [Concomitant]
     Dosage: 400 IU, QD
     Route: 048
  6. LAC-HYDRIN [Concomitant]
     Dosage: APPLY TO AREA DAILY
     Route: 061
     Dates: start: 20090826
  7. DEFEROXAMINE MESYLATE [Concomitant]
     Dosage: UNK
     Dates: start: 20090801, end: 20091101

REACTIONS (3)
  - AORTIC STENOSIS [None]
  - CARDIAC MURMUR [None]
  - DEATH [None]
